FAERS Safety Report 5766104-6 (Version None)
Quarter: 2008Q2

REPORT INFORMATION
  Report Type: 
  Country: None (occurrence: None)
  Receive Date: 20080611
  Receipt Date: 20080530
  Transmission Date: 20081010
  Serious: Yes (Disabling)
  Sender: FDA-Public Use
  Company Number: JP-SANOFI-SYNTHELABO-A01200806436

PATIENT
  Age: 66 Year
  Sex: Male

DRUGS (11)
  1. ASPIRIN [Concomitant]
     Indication: DRUG USE FOR UNKNOWN INDICATION
     Dosage: 200 MG
     Route: 048
     Dates: end: 20080521
  2. CILOSTATE [Concomitant]
     Indication: DRUG USE FOR UNKNOWN INDICATION
     Dosage: 200 MG
     Route: 048
     Dates: end: 20080521
  3. LASIX [Concomitant]
     Indication: DRUG USE FOR UNKNOWN INDICATION
     Dosage: 40 MG
     Route: 048
  4. NEUQUINON [Concomitant]
     Indication: DRUG USE FOR UNKNOWN INDICATION
     Dosage: 30 MG
     Route: 048
  5. MUCOSTA [Concomitant]
     Indication: DRUG USE FOR UNKNOWN INDICATION
     Dosage: 300 MG
     Route: 048
  6. ALLOPURINOL [Concomitant]
     Indication: DRUG USE FOR UNKNOWN INDICATION
     Dosage: 200 MG
     Route: 048
  7. MAGMITT [Concomitant]
     Indication: DRUG USE FOR UNKNOWN INDICATION
     Dosage: 990 MG
     Route: 048
  8. KENTAN [Concomitant]
     Indication: PAIN
     Route: 048
     Dates: start: 20080501
  9. PENTAZOCINE LACTATE [Suspect]
     Indication: PAIN
     Route: 048
     Dates: start: 20080501, end: 20080508
  10. PENTAZOCINE LACTATE [Suspect]
     Route: 048
     Dates: start: 20080509, end: 20080511
  11. PENTAZOCINE LACTATE [Suspect]
     Route: 048
     Dates: start: 20080512, end: 20080513

REACTIONS (2)
  - FALL [None]
  - MUSCULAR WEAKNESS [None]
